FAERS Safety Report 7819602-5 (Version None)
Quarter: 2011Q4

REPORT INFORMATION
  Report Type: 
  Country: None (occurrence: None)
  Receive Date: 20111018
  Receipt Date: 20111018
  Transmission Date: 20120403
  Serious: Yes (Other)
  Sender: FDA-Public Use
  Company Number: None

PATIENT
  Age: 55 Year
  Sex: Female
  Weight: 75.749 kg

DRUGS (1)
  1. METFORMIN HCL [Suspect]
     Indication: DIABETES MELLITUS
     Dosage: 3 TABLETS
     Route: 048
     Dates: start: 20110922, end: 20111015

REACTIONS (6)
  - DIARRHOEA [None]
  - FEAR [None]
  - PRODUCT SOLUBILITY ABNORMAL [None]
  - FOREIGN BODY [None]
  - DYSPNOEA [None]
  - MEDICATION RESIDUE [None]
